FAERS Safety Report 7046120-7 (Version None)
Quarter: 2010Q4

REPORT INFORMATION
  Report Type: 
  Country: None (occurrence: None)
  Receive Date: 20101013
  Receipt Date: 20101013
  Transmission Date: 20110411
  Serious: No
  Sender: FDA-Public Use
  Company Number: None

PATIENT
  Sex: Female

DRUGS (1)
  1. METHOTREXATE [Suspect]
     Dosage: 25 MG /ML IJ SUBCUTANEOUSLY ONCE A WEEK **EXPIRES 28 DAYS AFTER INITIAL ENTRY**
     Route: 058
     Dates: start: 20080607

REACTIONS (2)
  - FATIGUE [None]
  - NAUSEA [None]
